FAERS Safety Report 9287223 (Version 2)
Quarter: 2013Q2

REPORT INFORMATION
  Report Type: Spontaneous
  Country: DE (occurrence: DE)
  Receive Date: 20130513
  Receipt Date: 20130603
  Transmission Date: 20140414
  Serious: Yes (Other)
  Sender: FDA-Public Use
  Company Number: DE-B.I. PHARMACEUTICALS,INC./RIDGEFIELD-2013-DE-01301DE

PATIENT
  Age: 92 Year
  Sex: Female
  Weight: 69 kg

DRUGS (4)
  1. PRADAXA [Suspect]
     Indication: ATRIAL FIBRILLATION
     Dosage: 220 MG
     Route: 048
     Dates: start: 20120508, end: 20130503
  2. TILIDIN COMP. [Concomitant]
     Indication: SPINAL OSTEOARTHRITIS
     Dosage: STRENGTH: 200/16MG; DAILY DOSE 400/32MG
     Route: 048
     Dates: start: 201207
  3. AMILORID + HCT [Concomitant]
     Indication: CARDIAC FAILURE
     Dosage: STRENGTH: 5/50MG DAILY
     Route: 048
     Dates: start: 201205
  4. TORASEMID 5 [Concomitant]
     Indication: CARDIAC FAILURE
     Dosage: 5 MG
     Route: 048
     Dates: start: 201205

REACTIONS (4)
  - Liver function test abnormal [Not Recovered/Not Resolved]
  - Haemorrhoidal haemorrhage [Not Recovered/Not Resolved]
  - Creatinine renal clearance [Not Recovered/Not Resolved]
  - Skin haemorrhage [Unknown]
